FAERS Safety Report 6736433-8 (Version None)
Quarter: 2010Q2

REPORT INFORMATION
  Report Type: 
  Country: None (occurrence: None)
  Receive Date: 20100521
  Receipt Date: 20100513
  Transmission Date: 20101027
  Serious: Yes (Hospitalization)
  Sender: FDA-Public Use
  Company Number: JP-MERCK-1005USA02324

PATIENT
  Age: 48 Year
  Sex: Female

DRUGS (1)
  1. ZETIA [Suspect]
     Route: 048
     Dates: start: 20100301

REACTIONS (1)
  - ILEUS [None]
